FAERS Safety Report 21889799 (Version 4)
Quarter: 2023Q2

REPORT INFORMATION
  Report Type: Spontaneous
  Country: US (occurrence: US)
  Receive Date: 20230120
  Receipt Date: 20230531
  Transmission Date: 20230721
  Serious: Yes (Hospitalization)
  Sender: FDA-Public Use
  Company Number: US-PFIZER INC-PV202300011798

PATIENT
  Age: 86 Year
  Sex: Female
  Weight: 55.329 kg

DRUGS (1)
  1. IBRANCE [Suspect]
     Active Substance: PALBOCICLIB
     Indication: Breast cancer
     Dosage: 125 MG
     Dates: start: 20201101

REACTIONS (4)
  - Malaise [Not Recovered/Not Resolved]
  - Hypoacusis [Not Recovered/Not Resolved]
  - Oral pain [Unknown]
  - Nausea [Unknown]

NARRATIVE: CASE EVENT DATE: 20230118
